FAERS Safety Report 12641223 (Version 1)
Quarter: 2016Q3

REPORT INFORMATION
  Report Type: Spontaneous
  Country: US (occurrence: US)
  Receive Date: 20160810
  Receipt Date: 20160810
  Transmission Date: 20161109
  Serious: No
  Sender: FDA-Public Use
  Company Number: US-PFIZER INC-2016346392

PATIENT
  Sex: Male

DRUGS (2)
  1. TESTOSTERONE CYPIONATE. [Concomitant]
     Active Substance: TESTOSTERONE CYPIONATE
     Indication: BLOOD TESTOSTERONE DECREASED
     Dosage: 400 MG A WEEK
  2. VIAGRA [Suspect]
     Active Substance: SILDENAFIL CITRATE
     Indication: MALE ORGASMIC DISORDER
     Dosage: UNK, ONLY TOOK ONE

REACTIONS (2)
  - Erectile dysfunction [Unknown]
  - Drug ineffective for unapproved indication [Unknown]
